FAERS Safety Report 4658604-7 (Version None)
Quarter: 2005Q2

REPORT INFORMATION
  Report Type: 
  Country: None (occurrence: None)
  Receive Date: 20050510
  Receipt Date: 20050425
  Transmission Date: 20051028
  Serious: Yes (Hospitalization)
  Sender: FDA-Public Use
  Company Number: 2005S1002739

PATIENT
  Sex: Female

DRUGS (2)
  1. ATENOLOL [Suspect]
     Indication: HYPERTENSION
     Dosage: SEE IMAGE
     Route: 048
     Dates: start: 19900101, end: 19990101
  2. ATENOLOL [Suspect]
     Indication: HYPERTENSION
     Dosage: SEE IMAGE
     Route: 048
     Dates: start: 19990101

REACTIONS (4)
  - OEDEMA [None]
  - OVERDOSE [None]
  - PERIPHERAL VASCULAR DISORDER [None]
  - SKIN ULCER [None]
